FAERS Safety Report 5142269-4 (Version None)
Quarter: 2006Q4

REPORT INFORMATION
  Report Type: 
  Country: None (occurrence: None)
  Receive Date: 20061102
  Receipt Date: 20060905
  Transmission Date: 20070319
  Serious: Yes (Other)
  Sender: FDA-Public Use
  Company Number: DE-ROCHE-461975

PATIENT
  Age: 31 Year
  Sex: Female
  Weight: 41 kg

DRUGS (2)
  1. PEG-INTERFERON A-2A (RO 25-8310) [Suspect]
     Route: 058
     Dates: start: 20031105, end: 20040217
  2. RIBAVIRIN [Suspect]
     Route: 048
     Dates: start: 20031105, end: 20040217

REACTIONS (5)
  - ASTHENIA [None]
  - CACHEXIA [None]
  - GENERAL SYMPTOM [None]
  - ORAL INTAKE REDUCED [None]
  - WEIGHT DECREASED [None]
